FAERS Safety Report 6868409-4 (Version None)
Quarter: 2010Q3

REPORT INFORMATION
  Report Type: 
  Country: None (occurrence: None)
  Receive Date: 20100722
  Receipt Date: 20080528
  Transmission Date: 20110219
  Serious: No
  Sender: FDA-Public Use
  Company Number: US-PFIZER INC-2008046787

PATIENT
  Sex: Female
  Weight: 76.363 kg

DRUGS (3)
  1. CHANTIX [Suspect]
     Indication: SMOKING CESSATION THERAPY
     Route: 048
     Dates: start: 20071203, end: 20080526
  2. DESOGESTREL AND ETHINYL ESTRADIOL [Concomitant]
  3. NASACORT [Concomitant]

REACTIONS (5)
  - ABNORMAL DREAMS [None]
  - DIZZINESS [None]
  - DYSPNOEA [None]
  - NIGHTMARE [None]
  - PALPITATIONS [None]
